FAERS Safety Report 15139395 (Version 1)
Quarter: 2018Q3

REPORT INFORMATION
  Report Type: Spontaneous
  Country: JP (occurrence: JP)
  Receive Date: 20180713
  Receipt Date: 20180713
  Transmission Date: 20181010
  Serious: Yes (Hospitalization, Other)
  Sender: FDA-Public Use
  Company Number: JP-ACCORD-069472

PATIENT
  Age: 46 Year
  Sex: Female

DRUGS (2)
  1. ETANERCEPT [Concomitant]
     Active Substance: ETANERCEPT
     Indication: RHEUMATOID ARTHRITIS
     Dosage: FOR 3 YEARS AND 5 MONTHS
  2. METHOTREXATE. [Suspect]
     Active Substance: METHOTREXATE
     Indication: RHEUMATOID ARTHRITIS
     Dosage: 8?10 MG/WEEK FOR 4 YEARS AND 11 MONTHS

REACTIONS (3)
  - Diffuse large B-cell lymphoma [Recovered/Resolved]
  - Pathological fracture [Recovering/Resolving]
  - Epstein-Barr virus associated lymphoproliferative disorder [Recovered/Resolved]
